FAERS Safety Report 12169195 (Version 2)
Quarter: 2016Q1

REPORT INFORMATION
  Report Type: Spontaneous
  Country: CH (occurrence: CH)
  Receive Date: 20160310
  Receipt Date: 20160321
  Transmission Date: 20160526
  Serious: Yes (Hospitalization)
  Sender: FDA-Public Use
  Company Number: CH-BAYER-2016-040597

PATIENT
  Age: 82 Year
  Sex: Female

DRUGS (9)
  1. DICLOFENAC [Interacting]
     Active Substance: DICLOFENAC
     Indication: BACK PAIN
     Route: 030
     Dates: start: 20160205, end: 20160205
  2. INDAPAMID [Concomitant]
     Active Substance: INDAPAMIDE
     Route: 048
     Dates: end: 20160207
  3. COVERSUM COMBI [Concomitant]
     Active Substance: INDAPAMIDE
     Dosage: 5 MG, QD
     Route: 048
  4. ATORVASTATIN [Concomitant]
     Active Substance: ATORVASTATIN
     Dosage: 20 MG, UNK
     Route: 048
  5. NOVALGIN [Concomitant]
     Active Substance: METAMIZOLE SODIUM
     Dates: end: 201602
  6. PREDNISON [Interacting]
     Active Substance: PREDNISONE
     Indication: BACK PAIN
     Route: 030
     Dates: start: 20160205, end: 20160205
  7. ELTROXIN [Concomitant]
     Active Substance: LEVOTHYROXINE
     Dosage: .1 MG, QD
     Route: 048
  8. ASPIRIN CARDIO [Suspect]
     Active Substance: ASPIRIN
     Dosage: 100 MG, QD
     Route: 048
     Dates: start: 2015
  9. TEBOKAN [Interacting]
     Active Substance: GINKGO
     Dosage: 120 MG, BID
     Dates: start: 2015

REACTIONS (4)
  - Gastric ulcer [Recovering/Resolving]
  - Nausea [Unknown]
  - Drug interaction [Recovering/Resolving]
  - Upper gastrointestinal haemorrhage [Recovered/Resolved with Sequelae]

NARRATIVE: CASE EVENT DATE: 20160120
